FAERS Safety Report 6426090-2 (Version None)
Quarter: 2009Q4

REPORT INFORMATION
  Report Type: 
  Country: None (occurrence: None)
  Receive Date: 20091103
  Receipt Date: 20091103
  Transmission Date: 20100525
  Serious: Yes (Other)
  Sender: FDA-Public Use
  Company Number: None

PATIENT
  Age: 45 Year
  Sex: Female
  Weight: 66.6788 kg

DRUGS (2)
  1. ULTRAM [Suspect]
     Indication: BACK PAIN
     Dosage: 50MG ONCE ORAL 047 ONE PILL
     Route: 048
     Dates: start: 20090201
  2. ULTRAM [Suspect]
     Indication: BACK PAIN
     Dosage: 50 MG X 2 ONCE ORAL 047 TWO PILLS
     Route: 048
     Dates: start: 20091101

REACTIONS (9)
  - DIZZINESS [None]
  - DYSPNOEA [None]
  - HALLUCINATION [None]
  - NAUSEA [None]
  - PALPITATIONS [None]
  - PARAESTHESIA [None]
  - PRURITUS [None]
  - SOMNOLENCE [None]
  - VOMITING [None]
